FAERS Safety Report 16025320 (Version 2)
Quarter: 2019Q2

REPORT INFORMATION
  Report Type: Spontaneous
  Country: US (occurrence: US)
  Receive Date: 20190301
  Receipt Date: 20190403
  Transmission Date: 20190711
  Serious: Yes (Other)
  Sender: FDA-Public Use
  Company Number: US-PFIZER INC-2019088287

PATIENT
  Age: 36 Year
  Sex: Female

DRUGS (6)
  1. VERAPAMIL HCL [Suspect]
     Active Substance: VERAPAMIL HYDROCHLORIDE
     Dosage: 20 MG, UNK (OVER 10 MIN)
     Route: 013
  2. DANTROLENE. [Concomitant]
     Active Substance: DANTROLENE SODIUM
     Dosage: 15 MG, UNK
  3. NICARDIPINE [Concomitant]
     Active Substance: NICARDIPINE
     Dosage: 15 MG, UNK
  4. VERAPAMIL HCL [Suspect]
     Active Substance: VERAPAMIL HYDROCHLORIDE
     Indication: VASOSPASM
     Dosage: 40 MG, UNK (OVER 20 MINUTES)
     Route: 013
  5. VERAPAMIL HCL [Suspect]
     Active Substance: VERAPAMIL HYDROCHLORIDE
     Dosage: 40 MG, UNK (WAS INJECTED INTO THE RIGHT ICA OVER 40 MIN)
     Route: 013
  6. VERAPAMIL HCL [Suspect]
     Active Substance: VERAPAMIL HYDROCHLORIDE
     Dosage: 40 MG, UNK (INJECTED INTO THE LEFT ICA OVER 10 MIN)
     Route: 013

REACTIONS (1)
  - Drug ineffective [Recovering/Resolving]
